FAERS Safety Report 5908640-5 (Version None)
Quarter: 2008Q4

REPORT INFORMATION
  Report Type: 
  Country: None (occurrence: None)
  Receive Date: 20081006
  Receipt Date: 20080923
  Transmission Date: 20090506
  Serious: Yes (Hospitalization)
  Sender: FDA-Public Use
  Company Number: HU-ELI_LILLY_AND_COMPANY-HU200804007322

PATIENT
  Sex: Female
  Weight: 119 kg

DRUGS (4)
  1. LISPRO REGLISPRO [Suspect]
     Indication: TYPE 2 DIABETES MELLITUS
     Dosage: 24 IU, EACH MORNING
     Route: 058
     Dates: start: 20080120
  2. LISPRO REGLISPRO [Suspect]
     Dosage: 12 IU, OTHER (AFTERNOON)
     Route: 058
     Dates: start: 20080120
  3. LISPRO REGLISPRO [Suspect]
     Dosage: 14 IU, EACH EVENING
     Route: 058
     Dates: start: 20080120
  4. HUMAN INSULIN (RDNA) 30REG70NPH UNK MANU [Suspect]
     Indication: TYPE 2 DIABETES MELLITUS
     Dosage: 26 IU, DAILY (1/D)
     Route: 058

REACTIONS (2)
  - ATRIAL FIBRILLATION [None]
  - FEBRILE INFECTION [None]
